FAERS Safety Report 4884355-X (Version None)
Quarter: 2006Q1

REPORT INFORMATION
  Report Type: 
  Country: None (occurrence: None)
  Receive Date: 20060117
  Receipt Date: 20060117
  Transmission Date: 20060701
  Serious: No
  Sender: FDA-Public Use
  Company Number: None

PATIENT
  Age: 60 Year
  Sex: Male
  Weight: 81 kg

DRUGS (1)
  1. TPN COMPOUNDED IN PHARMACY [Suspect]
     Indication: MALNUTRITION

REACTIONS (1)
  - DRUG DISPENSING ERROR [None]
